FAERS Safety Report 6168270-X (Version None)
Quarter: 2009Q2

REPORT INFORMATION
  Report Type: 
  Country: None (occurrence: None)
  Receive Date: 20090423
  Receipt Date: 20090408
  Transmission Date: 20091009
  Serious: Yes (Death)
  Sender: FDA-Public Use
  Company Number: GXKR2009CA04479

PATIENT
  Age: 24 Year
  Sex: Female

DRUGS (1)
  1. PREDNISONE (NGX) (PREDNISONE) [Suspect]
     Indication: JUVENILE ARTHRITIS

REACTIONS (4)
  - ACUTE MYOCARDIAL INFARCTION [None]
  - CARDIAC ARREST [None]
  - CORONARY ARTERY EMBOLISM [None]
  - RETCHING [None]
